FAERS Safety Report 9804241 (Version 1)
Quarter: 2014Q1

REPORT INFORMATION
  Report Type: Spontaneous
  Country: NO (occurrence: None)
  Receive Date: 20140103
  Receipt Date: 20140103
  Transmission Date: 20141002
  Serious: Yes (Disabling)
  Sender: FDA-Public Use
  Company Number: NO-SEPTODONT-201301669

PATIENT
  Age: 52 Year
  Sex: Male

DRUGS (1)
  1. SEPTOCAINE [Suspect]
     Indication: LOCAL ANAESTHESIA
     Dosage: TOTAL
     Route: 004
     Dates: start: 20130429, end: 20130429

REACTIONS (2)
  - Anosmia [None]
  - Hypogeusia [None]
